FAERS Safety Report 11649901 (Version 1)
Quarter: 2015Q4

REPORT INFORMATION
  Report Type: Spontaneous
  Country: FR (occurrence: FR)
  Receive Date: 20151021
  Receipt Date: 20151021
  Transmission Date: 20160304
  Serious: Yes (Death, Congenital Anomaly)
  Sender: FDA-Public Use
  Company Number: FR-SA-2015SA165579

PATIENT
  Sex: Female
  Weight: .34 kg

DRUGS (13)
  1. REMICADE [Suspect]
     Active Substance: INFLIXIMAB
     Indication: MATERNAL EXPOSURE TIMING UNSPECIFIED
     Dosage: FREQUENCY: EACH COURSE
     Route: 064
     Dates: start: 20150401, end: 20150710
  2. SPASFON [Suspect]
     Active Substance: PHLOROGLUCINOL
     Indication: MATERNAL EXPOSURE TIMING UNSPECIFIED
     Route: 064
  3. SPECIAFOLDINE [Suspect]
     Active Substance: FOLIC ACID
     Indication: MATERNAL EXPOSURE TIMING UNSPECIFIED
     Route: 064
     Dates: start: 201504, end: 201507
  4. DAFALGAN [Suspect]
     Active Substance: ACETAMINOPHEN
     Indication: MATERNAL EXPOSURE TIMING UNSPECIFIED
     Route: 064
  5. CIPROFLOXACIN. [Suspect]
     Active Substance: CIPROFLOXACIN
     Indication: MATERNAL EXPOSURE TIMING UNSPECIFIED
     Route: 064
     Dates: start: 20150403, end: 20150408
  6. LOVENOX [Suspect]
     Active Substance: ENOXAPARIN SODIUM
     Indication: MATERNAL EXPOSURE TIMING UNSPECIFIED
     Route: 064
     Dates: start: 20150329, end: 20150416
  7. CALCIDOSE [Suspect]
     Active Substance: CALCIUM CARBONATE
     Indication: MATERNAL EXPOSURE TIMING UNSPECIFIED
     Route: 064
     Dates: start: 201504, end: 201507
  8. ROWASA [Suspect]
     Active Substance: MESALAMINE
     Indication: MATERNAL EXPOSURE TIMING UNSPECIFIED
     Route: 064
     Dates: start: 201504, end: 201507
  9. DOMPERIDONE ARROW [Suspect]
     Active Substance: DOMPERIDONE
     Indication: MATERNAL EXPOSURE TIMING UNSPECIFIED
     Route: 064
     Dates: start: 201504, end: 201507
  10. DIFFU K [Suspect]
     Active Substance: POTASSIUM CHLORIDE
     Indication: MATERNAL EXPOSURE TIMING UNSPECIFIED
     Route: 064
     Dates: end: 201505
  11. TARDYFERON [Suspect]
     Active Substance: FERROUS SULFATE\FOLIC ACID
     Indication: MATERNAL EXPOSURE TIMING UNSPECIFIED
     Route: 064
     Dates: start: 201505, end: 201507
  12. DIFFU K [Suspect]
     Active Substance: POTASSIUM CHLORIDE
     Indication: MATERNAL EXPOSURE TIMING UNSPECIFIED
     Route: 064
     Dates: start: 201505, end: 201507
  13. METHYLPREDNISOLONE. [Suspect]
     Active Substance: METHYLPREDNISOLONE
     Indication: MATERNAL EXPOSURE TIMING UNSPECIFIED
     Route: 064
     Dates: start: 20150327, end: 20150403

REACTIONS (5)
  - Premature baby [Fatal]
  - Congenital aortic anomaly [Fatal]
  - Foetal exposure during pregnancy [Unknown]
  - Stillbirth [Fatal]
  - Exomphalos [Fatal]

NARRATIVE: CASE EVENT DATE: 2015
